FAERS Safety Report 4590318-4 (Version None)
Quarter: 2005Q1

REPORT INFORMATION
  Report Type: 
  Country: None (occurrence: None)
  Receive Date: 20050217
  Receipt Date: 20050208
  Transmission Date: 20050727
  Serious: Yes (Other)
  Sender: FDA-Public Use
  Company Number: S05-USA-00702-01

PATIENT
  Age: 11 Day
  Sex: Male
  Weight: 7.8 kg

DRUGS (4)
  1. LEXAPRO [Suspect]
     Indication: POSTPARTUM DEPRESSION
     Dosage: 10 MG QD BF
     Dates: start: 20050203
  2. HYDROCODONE [Concomitant]
  3. IBUPROFEN [Concomitant]
  4. STOOL SOFTENER (DOCUSATE SODIUM) [Concomitant]

REACTIONS (3)
  - DRUG EXPOSURE VIA BREAST MILK [None]
  - FEEDING PROBLEM IN NEWBORN [None]
  - SOMNOLENCE NEONATAL [None]
